FAERS Safety Report 13452319 (Version 1)
Quarter: 2017Q2

REPORT INFORMATION
  Report Type: Other
  Country: US (occurrence: US)
  Receive Date: 20170418
  Receipt Date: 20170418
  Transmission Date: 20170830
  Serious: Yes (Hospitalization, Other)
  Sender: FDA-Public Use
  Company Number: US-SHIRE-US201707984

PATIENT
  Age: 62 Year
  Sex: Female

DRUGS (1)
  1. NATPARA (PARATHYROID HORMONE) [Suspect]
     Active Substance: PARATHYROID HORMONE
     Indication: HYPOPARATHYROIDISM
     Dosage: 100 ?G, 1X/DAY:QD
     Route: 058
     Dates: start: 20151209

REACTIONS (10)
  - Blood calcium decreased [Unknown]
  - Feeling abnormal [Recovering/Resolving]
  - Blood sodium decreased [Unknown]
  - Condition aggravated [Unknown]
  - Tetany [Recovering/Resolving]
  - Bone disorder [Unknown]
  - Pneumonia [Unknown]
  - Tooth loss [Unknown]
  - Fluid retention [Recovering/Resolving]
  - Drug ineffective [Unknown]

NARRATIVE: CASE EVENT DATE: 20170403
